FAERS Safety Report 21311294 (Version 1)
Quarter: 2022Q3

REPORT INFORMATION
  Report Type: Spontaneous
  Country: US (occurrence: None)
  Receive Date: 20220908
  Receipt Date: 20220908
  Transmission Date: 20221026
  Serious: Yes (Hospitalization)
  Sender: FDA-Public Use
  Company Number: None

PATIENT
  Age: 84 Year
  Sex: Female
  Weight: 49.17 kg

DRUGS (18)
  1. KISQALI [Suspect]
     Active Substance: RIBOCICLIB
     Indication: Breast cancer female
     Dosage: OTHER FREQUENCY : 21D ON 7 D OFF;?
     Route: 048
     Dates: start: 202208
  2. AMLODIPINE [Concomitant]
  3. ANASTROZOLE [Concomitant]
  4. BIOTIN [Concomitant]
  5. BREO ELLIPTA [Concomitant]
  6. CENTRUM SILVER [Concomitant]
  7. CITRACAL [Concomitant]
  8. CULTRURELLE [Concomitant]
  9. GABAPENTIN [Concomitant]
  10. LETROZOLE [Concomitant]
  11. LEVOTHYROXINE [Concomitant]
  12. MONTELUKAST [Concomitant]
  13. NEXIUM [Concomitant]
     Active Substance: ESOMEPRAZOLE MAGNESIUM
  14. PREDNISONE [Concomitant]
  15. SINGULAR [Concomitant]
  16. STOOL SOFTNER [Concomitant]
  17. UREA 20 [Concomitant]
  18. ZYRTEC [Concomitant]

REACTIONS (2)
  - Vomiting [None]
  - Hyponatraemia [None]
